FAERS Safety Report 6193543-4 (Version None)
Quarter: 2009Q2

REPORT INFORMATION
  Report Type: 
  Country: None (occurrence: None)
  Receive Date: 20090512
  Receipt Date: 20090426
  Transmission Date: 20091009
  Serious: Yes (Hospitalization)
  Sender: FDA-Public Use
  Company Number: B0572841A

PATIENT
  Age: 56 Year
  Sex: Male

DRUGS (2)
  1. ALBUTEROL SULFATE [Suspect]
     Indication: ASTHMA
  2. IPRATROPIUM BROMIDE [Suspect]

REACTIONS (10)
  - BLOOD PRESSURE INCREASED [None]
  - BODY TEMPERATURE DECREASED [None]
  - DEPRESSED LEVEL OF CONSCIOUSNESS [None]
  - DRUG INEFFECTIVE [None]
  - DYSPNOEA [None]
  - FATIGUE [None]
  - HEART RATE INCREASED [None]
  - LACTIC ACIDOSIS [None]
  - SPEECH DISORDER [None]
  - WHEEZING [None]
